FAERS Safety Report 10744173 (Version 1)
Quarter: 2015Q1

REPORT INFORMATION
  Report Type: Spontaneous
  Country: US (occurrence: None)
  Receive Date: 20150126
  Receipt Date: 20150126
  Transmission Date: 20150721
  Serious: No
  Sender: FDA-Public Use
  Company Number: None

PATIENT
  Age: 44 Year
  Sex: Female
  Weight: 126.55 kg

DRUGS (1)
  1. VICTOZA [Suspect]
     Active Substance: LIRAGLUTIDE
     Indication: DIABETES MELLITUS
     Dosage: 1.2 MG, ONCE DAILY, GIVEN INTO/UNDER THE SKIN?
     Dates: start: 20150122, end: 20150122

REACTIONS (4)
  - Poor quality sleep [None]
  - Nausea [None]
  - Decreased activity [None]
  - Headache [None]

NARRATIVE: CASE EVENT DATE: 20150122
